FAERS Safety Report 4414936-9 (Version None)
Quarter: 2004Q3

REPORT INFORMATION
  Report Type: 
  Country: None (occurrence: None)
  Receive Date: 20040804
  Receipt Date: 20040726
  Transmission Date: 20050211
  Serious: Yes (Death)
  Sender: FDA-Public Use
  Company Number: ES-BRISTOL-MYERS SQUIBB COMPANY-12650974

PATIENT
  Age: 11 Year
  Sex: Female
  Weight: 48 kg

DRUGS (4)
  1. MODECATE INJ 25 MG/ML [Suspect]
     Route: 030
     Dates: start: 20031113, end: 20031113
  2. AKINETON [Suspect]
     Route: 030
     Dates: start: 20031113, end: 20031113
  3. TRILEPTAL [Suspect]
     Indication: MENTAL DISORDER
     Route: 048
     Dates: start: 20031015, end: 20031119
  4. RISPERDAL [Suspect]
     Indication: MENTAL DISORDER
     Route: 048
     Dates: start: 20031015, end: 20031119

REACTIONS (1)
  - MYOCARDITIS [None]
